FAERS Safety Report 12927299 (Version 1)
Quarter: 2016Q4

REPORT INFORMATION
  Report Type: Spontaneous
  Country: US (occurrence: US)
  Receive Date: 20161109
  Receipt Date: 20161109
  Transmission Date: 20170207
  Serious: No
  Sender: FDA-Public Use
  Company Number: None

PATIENT
  Sex: Male
  Weight: 89.89 kg

DRUGS (2)
  1. SIROLIMUS 0.5M MG GREENSTONE [Suspect]
     Active Substance: SIROLIMUS
     Indication: BONE MARROW TRANSPLANT
     Route: 048
     Dates: start: 20130416
  2. SIROLIMUS 0.5M MG GREENSTONE [Suspect]
     Active Substance: SIROLIMUS
     Indication: MYELODYSPLASTIC SYNDROME
     Route: 048
     Dates: start: 20130416

REACTIONS (2)
  - Blood cholesterol increased [None]
  - Blood triglycerides increased [None]
